FAERS Safety Report 25682404 (Version 1)
Quarter: 2025Q3

REPORT INFORMATION
  Report Type: Spontaneous
  Country: US (occurrence: US)
  Receive Date: 20250814
  Receipt Date: 20250814
  Transmission Date: 20251020
  Serious: Yes (Other)
  Sender: TEVA
  Company Number: US-TEVA-VS-3359713

PATIENT
  Age: 30 Year
  Sex: Female

DRUGS (1)
  1. PREDNISONE [Suspect]
     Active Substance: PREDNISONE
     Indication: Netherton^s syndrome
     Route: 065

REACTIONS (2)
  - Netherton^s syndrome [Recovering/Resolving]
  - Rebound effect [Unknown]
